FAERS Safety Report 8164838 (Version 3)
Quarter: 2012Q4

REPORT INFORMATION
  Report Type: Report from Study
  Country: TH (occurrence: TH)
  Receive Date: 20111002
  Receipt Date: 20121128
  Transmission Date: 20130627
  Serious: Yes (Hospitalization)
  Sender: FDA-Public Use
  Company Number: PHHO2011TH16198

PATIENT
  Age: 56 Year
  Sex: Male
  Weight: 63.2 kg

DRUGS (6)
  1. PROGRAF [Suspect]
     Indication: RENAL TRANSPLANT
     Dosage: 4.5 mg, daily
     Dates: start: 20110920
  2. PROGRAF [Suspect]
     Dosage: 4.5 mg, daily (2.5-0-2)
     Dates: start: 20111009
  3. MYFORTIC [Suspect]
     Indication: RENAL TRANSPLANT
     Dosage: 720 mg q^n 24 hr
     Dates: start: 20110920, end: 20111012
  4. MYFORTIC [Suspect]
     Dosage: 360 mg, BID
     Route: 048
     Dates: start: 20111018
  5. PREDNISOLONE [Concomitant]
     Dosage: 150 mg, QD
     Dates: start: 20110920
  6. PREDNISOLONE [Concomitant]
     Dosage: 10 mg, BID
     Route: 048
     Dates: start: 20111001

REACTIONS (4)
  - Azotaemia [Not Recovered/Not Resolved]
  - Cytomegalovirus colitis [Not Recovered/Not Resolved]
  - Dehydration [Unknown]
  - Disease progression [Not Recovered/Not Resolved]
